FAERS Safety Report 21541643 (Version 2)
Quarter: 2023Q1

REPORT INFORMATION
  Report Type: Spontaneous
  Country: US (occurrence: US)
  Receive Date: 20221102
  Receipt Date: 20230103
  Transmission Date: 20230418
  Serious: No
  Sender: FDA-Public Use
  Company Number: US-BAYER-2022A152702

PATIENT

DRUGS (1)
  1. MIRALAX [Suspect]
     Active Substance: POLYETHYLENE GLYCOL 3350
     Indication: Product used for unknown indication
     Dosage: UNK UNK, QOD
     Route: 048

REACTIONS (4)
  - Drug ineffective [Unknown]
  - Product prescribing issue [Unknown]
  - Product odour abnormal [None]
  - Product taste abnormal [None]
